FAERS Safety Report 14658082 (Version 2)
Quarter: 2018Q2

REPORT INFORMATION
  Report Type: Spontaneous
  Country: BR (occurrence: BR)
  Receive Date: 20180320
  Receipt Date: 20180626
  Transmission Date: 20180711
  Serious: Yes (Hospitalization)
  Sender: FDA-Public Use
  Company Number: BR-ABBVIE-18P-020-2289669-00

PATIENT
  Age: 32 Year
  Sex: Male

DRUGS (1)
  1. DEPAKENE [Suspect]
     Active Substance: VALPROIC ACID
     Indication: CONVULSION PROPHYLAXIS
     Route: 065

REACTIONS (6)
  - Bedridden [Not Recovered/Not Resolved]
  - Unevaluable event [Unknown]
  - Pneumonia [Recovered/Resolved]
  - Atrophy [Not Recovered/Not Resolved]
  - Disease complication [Not Recovered/Not Resolved]
  - Decubitus ulcer [Recovering/Resolving]

NARRATIVE: CASE EVENT DATE: 2017
